FAERS Safety Report 21302146 (Version 2)
Quarter: 2023Q1

REPORT INFORMATION
  Report Type: Spontaneous
  Country: FR (occurrence: None)
  Receive Date: 20220907
  Receipt Date: 20230317
  Transmission Date: 20230417
  Serious: Yes (Hospitalization)
  Sender: FDA-Public Use
  Company Number: 2022A302734

PATIENT
  Age: 23 Year
  Sex: Male
  Weight: 60 kg

DRUGS (1)
  1. QUETIAPINE [Suspect]
     Active Substance: QUETIAPINE
     Indication: Depression
     Dosage: 50 MG TWICE DAILY
     Route: 048
     Dates: start: 2020

REACTIONS (1)
  - Chorioretinitis [Recovered/Resolved with Sequelae]

NARRATIVE: CASE EVENT DATE: 20220820
